FAERS Safety Report 13013372 (Version 1)
Quarter: 2016Q4

REPORT INFORMATION
  Report Type: Report from Study
  Country: US (occurrence: US)
  Receive Date: 20161209
  Receipt Date: 20161209
  Transmission Date: 20170207
  Serious: Yes (Disabling, Other)
  Sender: FDA-Public Use
  Company Number: US-REGENERON PHARMACEUTICALS, INC.-2016-24649

PATIENT

DRUGS (1)
  1. EYLEA [Suspect]
     Active Substance: AFLIBERCEPT
     Indication: EYE HAEMORRHAGE
     Dosage: UNK UNK, MONTHLY
     Route: 031
     Dates: start: 20161125

REACTIONS (6)
  - Vitreous floaters [Unknown]
  - Off label use [Not Recovered/Not Resolved]
  - Fall [Unknown]
  - Visual impairment [Recovered/Resolved]
  - Blindness [Unknown]
  - Eye haemorrhage [Unknown]

NARRATIVE: CASE EVENT DATE: 20161125
